FAERS Safety Report 21924893 (Version 1)
Quarter: 2023Q1

REPORT INFORMATION
  Report Type: Spontaneous
  Country: US (occurrence: None)
  Receive Date: 20230127
  Receipt Date: 20230127
  Transmission Date: 20230418
  Serious: Yes (Hospitalization)
  Sender: FDA-Public Use
  Company Number: None

PATIENT
  Sex: Male

DRUGS (5)
  1. ABIRATERONE ACETATE [Suspect]
     Active Substance: ABIRATERONE ACETATE
     Indication: Prostate cancer
     Dosage: 250MG ORAL??TAKE 4 TABLETS BY MOUTH EVERY DAY?
     Route: 048
     Dates: start: 20230106
  2. ABIRATERONE ACETATE [Suspect]
     Active Substance: ABIRATERONE ACETATE
     Dosage: FREQUENCY : DAILY;?
     Route: 048
  3. COLCHICINE [Concomitant]
     Active Substance: COLCHICINE
  4. PREDNISONE [Concomitant]
     Active Substance: PREDNISONE
  5. XARELTO [Concomitant]
     Active Substance: RIVAROXABAN

REACTIONS (4)
  - Haemoglobin decreased [None]
  - Vitamin B12 decreased [None]
  - Oxygen saturation decreased [None]
  - Therapy interrupted [None]
